FAERS Safety Report 10334977 (Version 2)
Quarter: 2014Q3

REPORT INFORMATION
  Report Type: Spontaneous
  Country: GB (occurrence: GB)
  Receive Date: 20140723
  Receipt Date: 20140814
  Transmission Date: 20150326
  Serious: Yes (Other)
  Sender: FDA-Public Use
  Company Number: PHHY2014GB087588

PATIENT
  Age: 1 Week
  Weight: 4.13 kg

DRUGS (1)
  1. AMOXICILLIN. [Suspect]
     Active Substance: AMOXICILLIN
     Route: 042
     Dates: end: 20140705

REACTIONS (4)
  - Extravasation [Recovered/Resolved]
  - Infusion site vesicles [Recovered/Resolved]
  - Off label use [Recovered/Resolved]
  - Extravasation [Unknown]

NARRATIVE: CASE EVENT DATE: 20140704
